FAERS Safety Report 13621038 (Version 3)
Quarter: 2017Q2

REPORT INFORMATION
  Report Type: Spontaneous
  Country: JP (occurrence: JP)
  Receive Date: 20170607
  Receipt Date: 20170627
  Transmission Date: 20170830
  Serious: Yes (Other)
  Sender: FDA-Public Use
  Company Number: JP-ROCHE-1944068

PATIENT
  Age: 73 Year
  Sex: Female

DRUGS (14)
  1. LUCENTIS [Suspect]
     Active Substance: RANIBIZUMAB
     Dosage: BOTH EYES
     Route: 031
     Dates: start: 201211
  2. EYLEA [Suspect]
     Active Substance: AFLIBERCEPT
     Indication: PRODUCT USED FOR UNKNOWN INDICATION
     Dosage: 2 MG, UNK (INTO THE RIGHT EYE FOUR TIMES)
     Route: 031
     Dates: start: 201312
  3. EYLEA [Suspect]
     Active Substance: AFLIBERCEPT
     Dosage: UNK, (INTO THE RIGHT EYE FOUR TIMES AND INTO THE LEFT EYE ONCE)
     Route: 031
     Dates: start: 201412
  4. LUCENTIS [Suspect]
     Active Substance: RANIBIZUMAB
     Dosage: BOTH EYES
     Route: 031
     Dates: start: 201206
  5. LUCENTIS [Suspect]
     Active Substance: RANIBIZUMAB
     Dosage: RIGHT YE SIX TIMES AND INTO THE LEFT EYE ONCE
     Route: 031
     Dates: start: 201212
  6. LUCENTIS [Suspect]
     Active Substance: RANIBIZUMAB
     Dosage: 0.5 MG, (INTO THE LEFT EYE ONCE)
     Route: 031
     Dates: start: 201312
  7. LUCENTIS [Suspect]
     Active Substance: RANIBIZUMAB
     Indication: MACULAR DEGENERATION
     Route: 031
     Dates: start: 201112
  8. LUCENTIS [Suspect]
     Active Substance: RANIBIZUMAB
     Dosage: RIGHT EYE TWO TIMES AND INTO THE LEFT EYE
     Route: 031
     Dates: start: 201201
  9. LUCENTIS [Suspect]
     Active Substance: RANIBIZUMAB
     Dosage: RIGHT EYE
     Route: 031
     Dates: start: 201205
  10. LUCENTIS [Suspect]
     Active Substance: RANIBIZUMAB
     Dosage: RIGHT EYE
     Route: 031
     Dates: start: 201204
  11. LUCENTIS [Suspect]
     Active Substance: RANIBIZUMAB
     Dosage: LEFT EYE
     Route: 031
     Dates: start: 201207
  12. LUCENTIS [Suspect]
     Active Substance: RANIBIZUMAB
     Dosage: RIGHT EYE
     Route: 031
     Dates: start: 201209
  13. LUCENTIS [Suspect]
     Active Substance: RANIBIZUMAB
     Dosage: RIGHT EYE
     Route: 031
     Dates: start: 201208
  14. LUCENTIS [Suspect]
     Active Substance: RANIBIZUMAB
     Dosage: BOTH EYES
     Route: 031
     Dates: start: 201210

REACTIONS (3)
  - Visual acuity reduced [Not Recovered/Not Resolved]
  - Retinal scar [Not Recovered/Not Resolved]
  - Disease progression [Unknown]

NARRATIVE: CASE EVENT DATE: 201204
